FAERS Safety Report 8084707-3 (Version None)
Quarter: 2012Q1

REPORT INFORMATION
  Report Type: 
  Country: None (occurrence: None)
  Receive Date: 20120128
  Receipt Date: 20110331
  Transmission Date: 20120608
  Serious: No
  Sender: FDA-Public Use
  Company Number: US-ABBOTT-11P-163-0715512-00

PATIENT
  Age: 40 Year
  Sex: Female

DRUGS (10)
  1. HUMIRA [Suspect]
     Indication: CROHN'S DISEASE
     Dates: start: 20101001, end: 20110323
  2. HUMIRA [Suspect]
     Dates: start: 20110323
  3. PREDNISONE TAB [Concomitant]
     Indication: PRODUCT USED FOR UNKNOWN INDICATION
     Dosage: SLIDING SCALE DEPENDING ON FLARE UP SIGNS AND SYMPTOMS
  4. CALTRATE [Concomitant]
     Indication: VITAMIN SUPPLEMENTATION
  5. ZOLOFT [Concomitant]
     Indication: DEPRESSION
  6. MULTIVITAMIN [Concomitant]
     Indication: VITAMIN SUPPLEMENTATION
  7. VICODIN [Concomitant]
     Indication: PAIN
     Dosage: 5/500 X 1 EVERY 4-6 HOURS AS NEEDED
  8. AZATHIOPRINE [Concomitant]
     Indication: CROHN'S DISEASE
  9. CIPROFLOXACIN [Concomitant]
     Indication: CROHN'S DISEASE
     Dosage: TWICE DAILY AS NEEDED
  10. VITAMIN D [Concomitant]
     Indication: VITAMIN SUPPLEMENTATION

REACTIONS (5)
  - DEPRESSION [None]
  - INCORRECT DOSE ADMINISTERED [None]
  - DEVICE MALFUNCTION [None]
  - PRODUCT COLOUR ISSUE [None]
  - INJECTION SITE PAIN [None]
